FAERS Safety Report 7270854-2 (Version None)
Quarter: 2011Q1

REPORT INFORMATION
  Report Type: 
  Country: None (occurrence: None)
  Receive Date: 20110128
  Receipt Date: 20110128
  Transmission Date: 20110831
  Serious: No
  Sender: FDA-Public Use
  Company Number: None

PATIENT
  Sex: Male
  Weight: 86.4 kg

DRUGS (2)
  1. HIZENTRA [Suspect]
     Dosage: 10 GRAMS WEEKLY 003
     Dates: start: 20101210
  2. HIZENTRA [Suspect]
     Indication: PRIMARY IMMUNODEFICIENCY SYNDROME
     Dosage: 10 GRAMS WEEKLY 003
     Dates: start: 20101206

REACTIONS (2)
  - VEIN PAIN [None]
  - ARTHRALGIA [None]
